FAERS Safety Report 22876561 (Version 3)
Quarter: 2023Q4

REPORT INFORMATION
  Report Type: Spontaneous
  Country: US (occurrence: US)
  Receive Date: 20230829
  Receipt Date: 20231031
  Transmission Date: 20240110
  Serious: No
  Sender: FDA-Public Use
  Company Number: US-PFIZER INC-202300282751

PATIENT
  Age: 11 Year
  Sex: Male

DRUGS (1)
  1. GENOTROPIN [Suspect]
     Active Substance: SOMATROPIN
     Indication: Short stature
     Dosage: 1.6 MG, 1X/DAY
     Route: 058
     Dates: start: 2023

REACTIONS (8)
  - Drug dose omission by device [Unknown]
  - Device use error [Unknown]
  - Device use issue [Unknown]
  - Device difficult to use [Unknown]
  - Device mechanical issue [Unknown]
  - Product dose omission issue [Unknown]
  - Product supply issue [Unknown]
  - Treatment delayed [Unknown]
